FAERS Safety Report 19711226 (Version 1)
Quarter: 2021Q3

REPORT INFORMATION
  Report Type: Spontaneous
  Country: DE (occurrence: DE)
  Receive Date: 20210817
  Receipt Date: 20210817
  Transmission Date: 20211014
  Serious: Yes (Hospitalization)
  Sender: FDA-Public Use
  Company Number: DE-MYLANLABS-2021M1051940

PATIENT
  Age: 9 Year
  Sex: Male
  Weight: 22 kg

DRUGS (10)
  1. FERROSANOL [Concomitant]
     Active Substance: FERROUS GLUCONATE
     Indication: NEPHROGENIC ANAEMIA
     Dosage: 90 GTT DROPS, QD (DAILY DOSE: 90 GTT DROP(S) EVERY DAYS 3 SEPARATED DOSES)
     Route: 048
     Dates: start: 201602
  2. BIOCARN [Concomitant]
     Indication: CHRONIC KIDNEY DISEASE
     Dosage: 400 MILLIGRAM, QD (400 MG MILLGRAM(S) EVERY DAYS 2 SEPARATED DOSES)
     Route: 048
     Dates: start: 201408
  3. NACL [Concomitant]
     Active Substance: SODIUM CHLORIDE
     Indication: CHRONIC KIDNEY DISEASE
     Dosage: 21 MILLILITER, QD
     Route: 048
     Dates: start: 201409
  4. OXYBUTYNIN. [Concomitant]
     Active Substance: OXYBUTYNIN CHLORIDE
     Indication: HYPERTONIC BLADDER
     Dosage: 5 MILLIGRAM, QD (DAILY DOSE: 5 MG MILLGRAM(S) EVERY DAYS 2 SEPARATED DOSES)
     Route: 048
     Dates: start: 201905
  5. PREDNISOLONE. [Suspect]
     Active Substance: PREDNISOLONE
     Indication: RENAL TRANSPLANT
     Dosage: 2.5 MILLIGRAM, QOD (2.5 MG MILLGRAM(S) EVERY 2 DAYS)
     Route: 048
     Dates: start: 20180906
  6. CELLCEPT [Suspect]
     Active Substance: MYCOPHENOLATE MOFETIL\MYCOPHENOLATE MOFETIL HYDROCHLORIDE
     Indication: IMMUNOSUPPRESSION
     Dosage: 360 MILLIGRAM, QD (DAILY DOSE: 360 MG MILLGRAM(S) EVERY DAYS 2 SEPARATED DOSES)
     Route: 048
     Dates: start: 20180906
  7. B1 ASMEDIC [Concomitant]
     Indication: CHRONIC KIDNEY DISEASE
     Dosage: 150 MILLIGRAM, QD (DAILY DOSE: 150 MG MILLGRAM(S) EVERY DAYS)
     Route: 048
  8. MODIGRAF /01219901/ [Suspect]
     Active Substance: TACROLIMUS
     Indication: IMMUNOSUPPRESSION
     Dosage: 5.2 MILLIGRAM, QD (DAILY DOSE: 5.2 MG MILLGRAM(S) EVERY DAYS 2 SEPARATED DOSES)
     Route: 048
     Dates: start: 20180906
  9. ENALAPRIL [Concomitant]
     Active Substance: ENALAPRIL
     Indication: RENAL HYPERTENSION
     Dosage: 7.5 MILLIGRAM, QD (DAILY DOSE: 7.5 MG MILLGRAM(S) EVERY DAYS )
     Route: 048
     Dates: start: 202005
  10. MAGNESIOCARD [Concomitant]
     Active Substance: MAGNESIUM ASPARTATE HYDROCHLORIDE
     Indication: CHRONIC KIDNEY DISEASE
     Dosage: 1 DOSAGE FORM, QD (DAILY DOSE: 1 DF DOSAGE FORM EVERY DAYS)
     Route: 048
     Dates: start: 20180906

REACTIONS (1)
  - Pyelonephritis [Recovered/Resolved]

NARRATIVE: CASE EVENT DATE: 20200620
